FAERS Safety Report 5451155-1 (Version None)
Quarter: 2007Q3

REPORT INFORMATION
  Report Type: 
  Country: None (occurrence: None)
  Receive Date: 20070913
  Receipt Date: 20070905
  Transmission Date: 20080115
  Serious: Yes (Hospitalization, Other)
  Sender: FDA-Public Use
  Company Number: HQWYE066407SEP07

PATIENT
  Sex: Male
  Weight: 56 kg

DRUGS (7)
  1. SIROLIMUS [Suspect]
     Indication: PROPHYLAXIS AGAINST TRANSPLANT REJECTION
     Route: 048
     Dates: start: 20030912
  2. OMEPRAZOLE [Concomitant]
     Indication: PROPHYLAXIS
     Dosage: DOSE RANGE FROM 20-40 MG DAILY
     Route: 048
     Dates: start: 20060312, end: 20060716
  3. MYCOPHENOLATE MOFETIL [Concomitant]
     Indication: PROPHYLAXIS AGAINST TRANSPLANT REJECTION
     Dosage: DOSE RANGE FROM 1.5 TO 0.5 MG DAILY
     Dates: start: 20060301, end: 20060804
  4. TRAMADOL HCL [Concomitant]
     Indication: PAIN
     Route: 048
     Dates: start: 20060531, end: 20060702
  5. NPH INSULIN [Concomitant]
     Indication: DIABETES MELLITUS
     Dosage: PRN
     Route: 058
     Dates: start: 20060601
  6. ASPIRIN [Concomitant]
     Indication: PROPHYLAXIS
     Route: 048
     Dates: start: 20030120, end: 20060630
  7. METOCLOPRAMIDE [Concomitant]
     Indication: NAUSEA
     Route: 048
     Dates: start: 20060328, end: 20060707

REACTIONS (2)
  - PANCREATIC FISTULA [None]
  - WOUND ABSCESS [None]
